FAERS Safety Report 19402450 (Version 1)
Quarter: 2021Q2

REPORT INFORMATION
  Report Type: Spontaneous
  Country: NL (occurrence: NL)
  Receive Date: 20210611
  Receipt Date: 20210611
  Transmission Date: 20210717
  Serious: Yes (Life-Threatening, Hospitalization, Other)
  Sender: FDA-Public Use
  Company Number: NL-SUN PHARMACEUTICAL INDUSTRIES LTD-2021RR-300392

PATIENT
  Age: 71 Year
  Sex: Male
  Weight: 82.5 kg

DRUGS (4)
  1. CAPECITABINE TABLET FO 150MG / BRAND NAME NOT SPECIFIEDCAPECITABINE... [Suspect]
     Active Substance: CAPECITABINE
     Indication: RECTOSIGMOID CANCER METASTATIC
     Dosage: 2ND CYCLE CAPOX ON 01?04?2021 ()
     Route: 065
     Dates: start: 20210312, end: 20210401
  2. MACROGOL/ZOUTEN PDR V DRANK (MOVIC/MOLAX/LAXT/GEN) / BRAND NAME NOT... [Concomitant]
     Indication: PRODUCT USED FOR UNKNOWN INDICATION
     Dosage: POWDER FOR DRINK ()
     Route: 065
  3. ALGELDRAAT/MAGNESIUMHYDROXIDE SUS ORAAL 40/20MG/ML / BRAND NAME NOT... [Concomitant]
     Indication: PRODUCT USED FOR UNKNOWN INDICATION
     Dosage: SUSPENSION, 40/20 MG/ML (MILLIGRAMS PER MILLILITER) ()
     Route: 065
  4. OXALIPLATIN. [Suspect]
     Active Substance: OXALIPLATIN
     Indication: RECTOSIGMOID CANCER METASTATIC
     Dosage: 2ND CYCLE CAPOX ON 01?04?2021 ()
     Route: 065
     Dates: start: 20210312, end: 20210401

REACTIONS (1)
  - Pneumatosis intestinalis [Not Recovered/Not Resolved]

NARRATIVE: CASE EVENT DATE: 20210412
